FAERS Safety Report 6083756-4 (Version None)
Quarter: 2009Q1

REPORT INFORMATION
  Report Type: 
  Country: None (occurrence: None)
  Receive Date: 20090219
  Receipt Date: 20090211
  Transmission Date: 20090719
  Serious: Yes (Hospitalization, Other)
  Sender: FDA-Public Use
  Company Number: CH-WYE-G02991509

PATIENT
  Age: 66 Year
  Sex: Female

DRUGS (15)
  1. EFFEXOR [Suspect]
     Route: 048
     Dates: start: 20081124, end: 20081204
  2. EFFEXOR [Interacting]
     Route: 048
     Dates: start: 20081205, end: 20081209
  3. EFFEXOR [Interacting]
     Route: 048
     Dates: start: 20081210, end: 20081231
  4. XANAX [Concomitant]
     Route: 048
     Dates: start: 20081210, end: 20081221
  5. XANAX [Concomitant]
     Route: 048
     Dates: start: 20081222, end: 20081228
  6. XANAX [Concomitant]
     Route: 048
     Dates: start: 20081229, end: 20081231
  7. XANAX [Concomitant]
     Route: 048
     Dates: start: 20090101, end: 20090102
  8. XANAX [Concomitant]
     Route: 048
     Dates: start: 20090103, end: 20090108
  9. ZESTRIL [Concomitant]
     Route: 048
  10. LANSOPRAZOLE [Concomitant]
     Route: 048
  11. CLOZAPINE [Interacting]
     Dosage: 50-100 MG DAILY
     Route: 048
     Dates: start: 20081210, end: 20081214
  12. CLOZAPINE [Interacting]
     Route: 048
     Dates: start: 20081215, end: 20090107
  13. CLOZAPINE [Interacting]
     Route: 048
     Dates: start: 20090108, end: 20090113
  14. CLOZAPINE [Interacting]
     Route: 048
     Dates: start: 20090114, end: 20090115
  15. NORVASC [Concomitant]
     Route: 048

REACTIONS (6)
  - DRUG INTERACTION [None]
  - EOSINOPHILIA [None]
  - EXTRASYSTOLES [None]
  - OEDEMA PERIPHERAL [None]
  - POTENTIATING DRUG INTERACTION [None]
  - VENTRICULAR EXTRASYSTOLES [None]
